FAERS Safety Report 8447783-1 (Version None)
Quarter: 2012Q2

REPORT INFORMATION
  Report Type: 
  Country: None (occurrence: None)
  Receive Date: 20120612
  Receipt Date: 20120529
  Transmission Date: 20120825
  Serious: Yes (Hospitalization, Other)
  Sender: FDA-Public Use
  Company Number: CIP11000504

PATIENT
  Age: 82 Year
  Sex: Female

DRUGS (14)
  1. ALPRAZOLAM [Concomitant]
  2. CLOBETASOL 0.05 % (CLOBETASOL PROPIONATE) [Concomitant]
  3. DETROL LA [Concomitant]
  4. ASPIRIN [Concomitant]
  5. HYDROCOTISONE (HYDROCOTISONE) [Concomitant]
  6. FOSAMAX [Suspect]
     Dosage: 70 MG ONCE WEEKLY, ORAL
     Route: 048
     Dates: start: 20040701, end: 20100701
  7. FOSAMAX [Suspect]
     Indication: OSTEOPENIA
     Dosage: 10 MG DAILY, ORAL
     Route: 048
     Dates: start: 20010918, end: 20030801
  8. CALCIUM CARBONATE [Concomitant]
  9. COUMADIN [Concomitant]
  10. GLUCOSAMINE (GLUCOSAMINE) [Concomitant]
  11. COZAAR [Concomitant]
  12. IMIPRAMINE [Concomitant]
  13. CIPROFLOXACIN HCL [Concomitant]
  14. ACTONEL [Suspect]
     Indication: OSTEOPOROSIS
     Dosage: 35 MG ONCE WEEKLY, ORAL
     Route: 048
     Dates: start: 20030823, end: 20050601

REACTIONS (17)
  - FEMUR FRACTURE [None]
  - FRACTURE DISPLACEMENT [None]
  - ANAEMIA POSTOPERATIVE [None]
  - JOINT SWELLING [None]
  - BACK PAIN [None]
  - THYROIDECTOMY [None]
  - FRACTURED SACRUM [None]
  - VOMITING [None]
  - WALKING AID USER [None]
  - ARTHRALGIA [None]
  - HAEMORRHAGIC ANAEMIA [None]
  - OEDEMA PERIPHERAL [None]
  - PATHOLOGICAL FRACTURE [None]
  - FALL [None]
  - IMPAIRED HEALING [None]
  - FRACTURE MALUNION [None]
  - EMOTIONAL DISTRESS [None]
